FAERS Safety Report 4739027-9 (Version None)
Quarter: 2005Q3

REPORT INFORMATION
  Report Type: 
  Country: None (occurrence: None)
  Receive Date: 20050801
  Receipt Date: 20050308
  Transmission Date: 20060218
  Serious: Yes (Hospitalization)
  Sender: FDA-Public Use
  Company Number: 211193

PATIENT
  Sex: Male

DRUGS (5)
  1. RITUXAN [Suspect]
     Indication: CHRONIC LYMPHOCYTIC LEUKAEMIA
     Dosage: SEE IMAGE
     Route: 042
     Dates: start: 20021001, end: 20041201
  2. RITUXAN [Suspect]
     Indication: CHRONIC LYMPHOCYTIC LEUKAEMIA
     Dosage: SEE IMAGE
     Route: 042
     Dates: start: 20021001, end: 20041201
  3. CAMPATH [Concomitant]
  4. FLUDARA [Concomitant]
  5. ANTIBIOTIC (UNK INGREDIENTS) (ANTIBIOTICS NOS) [Concomitant]

REACTIONS (1)
  - INTERSTITIAL LUNG DISEASE [None]
